FAERS Safety Report 10932613 (Version 1)
Quarter: 2015Q1

REPORT INFORMATION
  Report Type: Spontaneous
  Country: US (occurrence: US)
  Receive Date: 20150320
  Receipt Date: 20150320
  Transmission Date: 20150721
  Serious: No
  Sender: FDA-Public Use
  Company Number: US-AMGEN-USASP2015024139

PATIENT

DRUGS (2)
  1. ENBREL [Suspect]
     Active Substance: ETANERCEPT
     Indication: PRODUCT USED FOR UNKNOWN INDICATION
     Dosage: UNK
     Route: 065
  2. B12                                /00056201/ [Concomitant]
     Dosage: UNK, 3 TIMES A WEEK FOR 2 WEEKS AND NOW ONCE PER MONTH

REACTIONS (5)
  - Epicondylitis [Unknown]
  - Arthralgia [Unknown]
  - Fatigue [Unknown]
  - Hypoaesthesia [Unknown]
  - Tinnitus [Unknown]
